FAERS Safety Report 4377429-3 (Version None)
Quarter: 2004Q2

REPORT INFORMATION
  Report Type: 
  Country: None (occurrence: None)
  Receive Date: 20040609
  Receipt Date: 20040309
  Transmission Date: 20050107
  Serious: No
  Sender: FDA-Public Use
  Company Number: 2004198302US

PATIENT
  Age: 53 Year
  Sex: Female

DRUGS (3)
  1. BEXTRA [Suspect]
     Indication: INFLAMMATION
     Dosage: 10 MG, QD
     Dates: start: 20040127
  2. SYNTHROID [Concomitant]
  3. GLUCOTROL [Concomitant]

REACTIONS (1)
  - BLOOD GLUCOSE DECREASED [None]
